FAERS Safety Report 4629992-2 (Version None)
Quarter: 2005Q2

REPORT INFORMATION
  Report Type: 
  Country: None (occurrence: None)
  Receive Date: 20050408
  Receipt Date: 20050329
  Transmission Date: 20051028
  Serious: Yes (Life-Threatening)
  Sender: FDA-Public Use
  Company Number: FR-BRISTOL-MYERS SQUIBB COMPANY-12915435

PATIENT
  Age: 78 Year
  Sex: Female

DRUGS (5)
  1. PRAVASTATIN [Suspect]
     Route: 048
     Dates: end: 20050103
  2. ALDACTONE [Suspect]
     Route: 048
     Dates: end: 20050103
  3. DEXTROPROPOXYPHENE [Suspect]
     Dates: end: 20050103
  4. ZESTRIL [Suspect]
     Route: 048
     Dates: end: 20050103
  5. LASILIX [Concomitant]
     Route: 048

REACTIONS (1)
  - RESPIRATORY ACIDOSIS [None]
